FAERS Safety Report 13775015 (Version 3)
Quarter: 2017Q3

REPORT INFORMATION
  Report Type: Spontaneous
  Country: US (occurrence: US)
  Receive Date: 20170721
  Receipt Date: 20170906
  Transmission Date: 20171127
  Serious: No
  Sender: FDA-Public Use
  Company Number: US-ASTRAZENECA-2017SE73541

PATIENT
  Age: 23906 Day
  Sex: Female
  Weight: 61.2 kg

DRUGS (2)
  1. SYMBICORT [Suspect]
     Active Substance: BUDESONIDE\FORMOTEROL FUMARATE DIHYDRATE
     Indication: DYSPNOEA
     Dosage: DOSE:160/4.5 MCG, FREQUENCY: TWO TIMES A DAY
     Route: 055
     Dates: start: 20170710
  2. SYMBICORT [Suspect]
     Active Substance: BUDESONIDE\FORMOTEROL FUMARATE DIHYDRATE
     Indication: DYSPNOEA
     Dosage: DOSE:160/4.5 MCG, FREQUENCY: TWO TIMES A DAY
     Route: 055
     Dates: start: 20170710

REACTIONS (4)
  - Product use in unapproved indication [Unknown]
  - Visual impairment [Not Recovered/Not Resolved]
  - Device malfunction [Unknown]
  - Off label use [Unknown]

NARRATIVE: CASE EVENT DATE: 20170712
